FAERS Safety Report 15250202 (Version 1)
Quarter: 2018Q3

REPORT INFORMATION
  Report Type: Spontaneous
  Country: IN (occurrence: IN)
  Receive Date: 20180807
  Receipt Date: 20180807
  Transmission Date: 20181010
  Serious: Yes (Hospitalization)
  Sender: FDA-Public Use
  Company Number: IN-MYLANLABS-2018M1058553

PATIENT
  Age: 14 Year
  Sex: Male

DRUGS (2)
  1. PHENOBARBITONE                     /00023201/ [Suspect]
     Active Substance: PHENOBARBITAL
     Indication: PRODUCT USED FOR UNKNOWN INDICATION
     Route: 048
  2. CARBAMAZEPINE. [Suspect]
     Active Substance: CARBAMAZEPINE
     Indication: PRODUCT USED FOR UNKNOWN INDICATION
     Route: 048

REACTIONS (12)
  - Prothrombin time prolonged [Recovered/Resolved]
  - Peripheral coldness [Recovered/Resolved]
  - Bundle branch block right [Recovered/Resolved]
  - Accidental exposure to product [Recovered/Resolved]
  - Blood creatine phosphokinase MB increased [Recovered/Resolved]
  - Sensory loss [Recovered/Resolved]
  - Respiratory depression [Recovered/Resolved]
  - Hypotension [Recovered/Resolved]
  - Toxicity to various agents [Recovered/Resolved]
  - Accidental overdose [Recovered/Resolved]
  - Coma [Recovered/Resolved]
  - Shock [Recovered/Resolved]
